FAERS Safety Report 9277187 (Version 14)
Quarter: 2022Q3

REPORT INFORMATION
  Report Type: Spontaneous
  Country: BR (occurrence: BR)
  Receive Date: 20130508
  Receipt Date: 20220906
  Transmission Date: 20221027
  Serious: Yes (Hospitalization, Other)
  Sender: FDA-Public Use
  Company Number: BR-PFIZER INC-2012225673

PATIENT
  Age: 55 Year
  Sex: Male
  Weight: 87 kg

DRUGS (6)
  1. ENBREL [Suspect]
     Active Substance: ETANERCEPT
     Indication: Rheumatoid arthritis
     Dosage: 25 MG, 2X/WEEK
     Route: 058
     Dates: start: 2007
  2. ENBREL [Suspect]
     Active Substance: ETANERCEPT
     Dosage: 50 MG, WEEKLY
     Route: 065
     Dates: start: 200710
  3. ENBREL [Suspect]
     Active Substance: ETANERCEPT
     Dosage: 50 MG, WEEKLY
     Route: 065
     Dates: start: 20151007
  4. ENBREL [Suspect]
     Active Substance: ETANERCEPT
     Dosage: EVERY 15 DAYS
     Route: 065
  5. ENBREL [Suspect]
     Active Substance: ETANERCEPT
     Dosage: 50 MG
     Route: 065
     Dates: start: 2007
  6. ARAVA [Concomitant]
     Active Substance: LEFLUNOMIDE
     Indication: Arthritis
     Dosage: UNK

REACTIONS (32)
  - Femur fracture [Recovered/Resolved]
  - Hip fracture [Recovered/Resolved]
  - Chemical burns of eye [Unknown]
  - Visual impairment [Unknown]
  - Corneal infection [Unknown]
  - Cataract [Unknown]
  - Diabetes mellitus [Unknown]
  - Fall [Unknown]
  - Pruritus [Unknown]
  - Headache [Recovered/Resolved]
  - Injection site pain [Unknown]
  - Pain in extremity [Unknown]
  - Arthralgia [Unknown]
  - Muscle spasms [Unknown]
  - Peripheral swelling [Unknown]
  - Joint lock [Unknown]
  - Arthralgia [Unknown]
  - Insomnia [Unknown]
  - Hypertension [Unknown]
  - Disease recurrence [Unknown]
  - Fatigue [Unknown]
  - Injection site pruritus [Unknown]
  - Injection site erythema [Unknown]
  - Decreased immune responsiveness [Unknown]
  - Herpes virus infection [Unknown]
  - Off label use [Unknown]
  - Injection site hypersensitivity [Unknown]
  - COVID-19 [Unknown]
  - Keratitis bacterial [Unknown]
  - Product supply issue [Unknown]
  - Product dose omission issue [Unknown]
  - Pain [Unknown]

NARRATIVE: CASE EVENT DATE: 20080101
